FAERS Safety Report 16827261 (Version 2)
Quarter: 2019Q3

REPORT INFORMATION
  Report Type: Report from Study
  Country: None (occurrence: BR)
  Receive Date: 20190919
  Receipt Date: 20190927
  Transmission Date: 20191005
  Serious: No
  Sender: FDA-Public Use
  Company Number: BR-ABBVIE-19K-020-2923364-00

PATIENT
  Age: 56 Year
  Sex: Female

DRUGS (1)
  1. HUMIRA [Suspect]
     Active Substance: ADALIMUMAB
     Indication: PSORIASIS
     Route: 058
     Dates: start: 20151021, end: 2019

REACTIONS (6)
  - Pain [Unknown]
  - Fatigue [Unknown]
  - Malaise [Unknown]
  - Musculoskeletal disorder [Unknown]
  - Tension [Unknown]
  - Hypertension [Unknown]

NARRATIVE: CASE EVENT DATE: 20190907
